FAERS Safety Report 6400430-2 (Version None)
Quarter: 2009Q4

REPORT INFORMATION
  Report Type: 
  Country: None (occurrence: None)
  Receive Date: 20091007
  Receipt Date: 20091007
  Transmission Date: 20100525
  Serious: Yes (Hospitalization)
  Sender: FDA-Public Use
  Company Number: None

PATIENT
  Age: 50 Year
  Sex: Female
  Weight: 79.4 kg

DRUGS (3)
  1. OGESTREL 0.5/50-28 [Suspect]
     Indication: MENORRHAGIA
     Dosage: 1 TABLET DAILY PO
     Route: 048
  2. REQUIP [Concomitant]
  3. EFFEXOR XR [Concomitant]

REACTIONS (2)
  - DEEP VEIN THROMBOSIS [None]
  - PULMONARY EMBOLISM [None]
